FAERS Safety Report 8935044 (Version 2)
Quarter: 2012Q4

REPORT INFORMATION
  Report Type: 
  Country: US (occurrence: US)
  Receive Date: 20121129
  Receipt Date: 20121231
  Transmission Date: 20130627
  Serious: Yes (Death)
  Sender: FDA-Public Use
  Company Number: US-009507513-1211USA010801

PATIENT
  Age: 71 Year
  Sex: Male

DRUGS (17)
  1. TEMODAR [Suspect]
     Indication: GLIOBLASTOMA
     Dosage: 140 mg, first dose
     Route: 048
     Dates: start: 20121019
  2. TEMODAR [Suspect]
     Dosage: 140 mg, second dose
     Route: 048
     Dates: start: 20121119
  3. TEMODAR [Suspect]
     Dosage: 140 mg, third dose
     Route: 048
     Dates: start: 20121120
  4. TEMODAR [Suspect]
     Indication: GLIOBLASTOMA
     Dosage: 5 mg,first dose
     Route: 048
     Dates: start: 20121019
  5. TEMODAR [Suspect]
     Dosage: 5mg,second dose
     Route: 048
     Dates: start: 20121119
  6. TEMODAR [Suspect]
     Dosage: 5 mg,third dose
     Route: 048
     Dates: start: 20121120
  7. CELEXA [Concomitant]
  8. COREG [Concomitant]
  9. KEPPRA [Concomitant]
  10. PROSCAR [Concomitant]
  11. PROTONIX [Concomitant]
  12. AMBIEN [Concomitant]
  13. COUMADIN [Concomitant]
  14. BACTRIM [Concomitant]
  15. ZOFRAN [Concomitant]
  16. SIMVASTATIN TABLETS, USP [Concomitant]
  17. DECADRON (DEXAMETHASONE) [Concomitant]

REACTIONS (1)
  - Death [Fatal]
